FAERS Safety Report 6968994-8 (Version None)
Quarter: 2010Q3

REPORT INFORMATION
  Report Type: 
  Country: None (occurrence: None)
  Receive Date: 20100902
  Receipt Date: 20100830
  Transmission Date: 20110219
  Serious: Yes (Other)
  Sender: FDA-Public Use
  Company Number: LVR-00242

PATIENT
  Age: 23 Year
  Sex: Female

DRUGS (1)
  1. LO/OVRAL [Suspect]

REACTIONS (4)
  - HEPATIC FUNCTION ABNORMAL [None]
  - IDIOSYNCRATIC DRUG REACTION [None]
  - JAUNDICE [None]
  - VOMITING [None]
